FAERS Safety Report 7723618-7 (Version None)
Quarter: 2011Q3

REPORT INFORMATION
  Report Type: 
  Country: None (occurrence: None)
  Receive Date: 20110826
  Receipt Date: 20110816
  Transmission Date: 20111222
  Serious: Yes (Death, Other)
  Sender: FDA-Public Use
  Company Number: DSU-2011-05669

PATIENT
  Age: 76 Year
  Sex: Male
  Weight: 73.02 kg

DRUGS (4)
  1. CELECOXIB [Suspect]
     Indication: OSTEOARTHRITIS
     Dosage: 200 MG (100 MG, BID), PER ORAL
     Route: 048
     Dates: start: 20090623
  2. CELECOXIB [Suspect]
     Indication: RHEUMATOID ARTHRITIS
     Dosage: 200 MG (100 MG, BID), PER ORAL
     Route: 048
     Dates: start: 20090623
  3. BENICAR [Suspect]
     Indication: HYPERTENSION
     Dosage: PER ORAL
     Route: 048
  4. NEXIUM [Concomitant]

REACTIONS (3)
  - RENAL FAILURE [None]
  - RESPIRATORY FAILURE [None]
  - ISCHAEMIC CARDIOMYOPATHY [None]
